FAERS Safety Report 18415418 (Version 1)
Quarter: 2020Q4

REPORT INFORMATION
  Report Type: Spontaneous
  Country: US (occurrence: US)
  Receive Date: 20201022
  Receipt Date: 20201022
  Transmission Date: 20210114
  Serious: Yes (Life-Threatening, Hospitalization, Other)
  Sender: FDA-Public Use
  Company Number: US-DRREDDYS-USA/USA/20/0128246

PATIENT
  Age: 44 Year
  Sex: Male

DRUGS (6)
  1. PENTOBARBITAL. [Concomitant]
     Active Substance: PENTOBARBITAL
     Indication: MEDICAL INDUCTION OF COMA
  2. FENTANYL CITRATE. [Concomitant]
     Active Substance: FENTANYL CITRATE
     Indication: PRODUCT USED FOR UNKNOWN INDICATION
  3. HYPERTONIC SALINE 3% [Concomitant]
     Active Substance: SODIUM CHLORIDE
     Indication: PRODUCT USED FOR UNKNOWN INDICATION
  4. ROCURONIUM [Concomitant]
     Active Substance: ROCURONIUM BROMIDE
     Indication: PRODUCT USED FOR UNKNOWN INDICATION
  5. HEPARIN SODIUM. [Suspect]
     Active Substance: HEPARIN SODIUM
     Route: 058
  6. HEPARIN SODIUM. [Suspect]
     Active Substance: HEPARIN SODIUM
     Indication: CEREBRAL VENOUS SINUS THROMBOSIS
     Route: 058

REACTIONS (3)
  - Heparin-induced thrombocytopenia [Recovered/Resolved]
  - Haemorrhage intracranial [Recovering/Resolving]
  - Deep vein thrombosis [Recovering/Resolving]
